FAERS Safety Report 6590687-X (Version None)
Quarter: 2010Q1

REPORT INFORMATION
  Report Type: 
  Country: None (occurrence: None)
  Receive Date: 20100219
  Receipt Date: 20100215
  Transmission Date: 20100710
  Serious: Yes (Hospitalization)
  Sender: FDA-Public Use
  Company Number: B0633654A

PATIENT
  Age: 50 Year
  Sex: Female

DRUGS (6)
  1. AUGMENTIN [Suspect]
     Indication: SINUSITIS
     Dosage: 3G PER DAY
     Route: 048
     Dates: start: 20090828, end: 20090830
  2. CEFPODOXIME PROXETIL [Concomitant]
     Indication: SINUSITIS
     Route: 065
     Dates: start: 20090902, end: 20090903
  3. IBUPROFEN [Concomitant]
     Indication: DRUG USE FOR UNKNOWN INDICATION
     Route: 065
  4. PARACETAMOL [Concomitant]
     Indication: DRUG USE FOR UNKNOWN INDICATION
     Route: 065
  5. DERINOX [Concomitant]
     Indication: DRUG USE FOR UNKNOWN INDICATION
     Route: 065
  6. INIPOMP [Concomitant]
     Indication: DRUG USE FOR UNKNOWN INDICATION
     Route: 065

REACTIONS (7)
  - ACUTE GENERALISED EXANTHEMATOUS PUSTULOSIS [None]
  - CONDITION AGGRAVATED [None]
  - FACE OEDEMA [None]
  - GASTROINTESTINAL DISORDER [None]
  - PRURITUS [None]
  - RASH PUSTULAR [None]
  - SKIN LESION [None]
